FAERS Safety Report 4828432-8 (Version None)
Quarter: 2005Q4

REPORT INFORMATION
  Report Type: 
  Country: None (occurrence: None)
  Receive Date: 20051115
  Receipt Date: 20051104
  Transmission Date: 20060501
  Serious: Yes (Death, Other)
  Sender: FDA-Public Use
  Company Number: JP-BRISTOL-MYERS SQUIBB COMPANY-13167721

PATIENT

DRUGS (2)
  1. BLEOMYCIN SULFATE [Suspect]
     Indication: SARCOMA
  2. ADRIAMYCIN PFS [Suspect]
     Indication: SARCOMA

REACTIONS (2)
  - CARDIOMYOPATHY [None]
  - PULMONARY FIBROSIS [None]
